FAERS Safety Report 25446171 (Version 1)
Quarter: 2025Q2

REPORT INFORMATION
  Report Type: Spontaneous
  Country: GB (occurrence: GB)
  Receive Date: 20250617
  Receipt Date: 20250617
  Transmission Date: 20250717
  Serious: Yes (Other)
  Sender: B BRAUN
  Company Number: GB-B.Braun Medical Inc.-2178877

PATIENT
  Sex: Male

DRUGS (4)
  1. LIDOCAINE HYDROCHLORIDE [Suspect]
     Active Substance: LIDOCAINE HYDROCHLORIDE
  2. METHYLPREDNISOLONE [Concomitant]
     Active Substance: METHYLPREDNISOLONE
  3. SODIUM CHLORIDE [Concomitant]
     Active Substance: SODIUM CHLORIDE
  4. BUPIVACAINE [Concomitant]
     Active Substance: BUPIVACAINE

REACTIONS (5)
  - Nausea [Recovered/Resolved]
  - Dizziness [Unknown]
  - Urticaria [Unknown]
  - Chest discomfort [Unknown]
  - Musculoskeletal stiffness [Unknown]
